FAERS Safety Report 4788605-X (Version None)
Quarter: 2005Q4

REPORT INFORMATION
  Report Type: 
  Country: None (occurrence: None)
  Receive Date: 20051005
  Receipt Date: 20050929
  Transmission Date: 20060501
  Serious: Yes (Other)
  Sender: FDA-Public Use
  Company Number: 200518684GDDC

PATIENT
  Age: 50 Year
  Sex: Female
  Weight: 50 kg

DRUGS (2)
  1. METRONIDAZOLE [Suspect]
     Indication: VAGINITIS BACTERIAL
     Route: 048
     Dates: start: 20050906, end: 20050907
  2. TEMAZEPAM [Concomitant]
     Indication: DEPRESSION
     Route: 048

REACTIONS (1)
  - OEDEMA PERIPHERAL [None]
